FAERS Safety Report 9621290 (Version 3)
Quarter: 2014Q1

REPORT INFORMATION
  Report Type: Spontaneous
  Country: JP (occurrence: JP)
  Receive Date: 20131015
  Receipt Date: 20140127
  Transmission Date: 20141002
  Serious: Yes (Life-Threatening, Hospitalization)
  Sender: FDA-Public Use
  Company Number: JP-SA-2013SA100996

PATIENT
  Age: 62 Year
  Sex: Female

DRUGS (7)
  1. LASIX [Suspect]
     Indication: OEDEMA
     Route: 048
     Dates: start: 2010
  2. NSAID^S [Suspect]
     Indication: PAIN
     Route: 065
     Dates: start: 2003
  3. NSAID^S [Suspect]
     Indication: PAIN
     Route: 065
     Dates: start: 2010
  4. MAGNESIUM OXIDE [Concomitant]
     Indication: CONSTIPATION
     Dates: start: 2010
  5. TRICHLORMETHIAZIDE [Concomitant]
     Indication: OEDEMA
     Dates: start: 201005
  6. MORPHINE [Concomitant]
     Indication: PAIN
     Dates: start: 2010
  7. AZOSEMIDE [Concomitant]
     Indication: OEDEMA
     Dates: start: 2003

REACTIONS (17)
  - Renal disorder [Recovering/Resolving]
  - Blood pressure decreased [Recovering/Resolving]
  - Muscular weakness [Recovering/Resolving]
  - Blood sodium decreased [Recovering/Resolving]
  - Blood potassium decreased [Recovering/Resolving]
  - Blood chloride decreased [Recovered/Resolved]
  - Hypermagnesaemia [Recovering/Resolving]
  - Blood urea increased [Recovering/Resolving]
  - Blood creatinine increased [Recovering/Resolving]
  - Dehydration [Recovering/Resolving]
  - Shock [Recovering/Resolving]
  - Metabolic acidosis [Recovering/Resolving]
  - Anion gap increased [Recovering/Resolving]
  - Metabolic alkalosis [Recovering/Resolving]
  - Blood pH increased [Recovering/Resolving]
  - PCO2 increased [Recovering/Resolving]
  - Blood bicarbonate increased [Recovering/Resolving]
